FAERS Safety Report 7367847 (Version 6)
Quarter: 2014Q1

REPORT INFORMATION
  Report Type: Spontaneous
  Country: US (occurrence: US)
  Receive Date: 20100427
  Receipt Date: 20140109
  Transmission Date: 20141002
  Serious: Yes (Death, Other)
  Sender: FDA-Public Use
  Company Number: US-BAYER-201018176NA

PATIENT
  Age: 58 Year
  Sex: Male
  Weight: 118 kg

DRUGS (31)
  1. MAGNEVIST [Suspect]
     Indication: FISTULOGRAM
     Dosage: APPROX 20ML VISIPAQUE AND APPROX 20ML MAGNEVIST
     Dates: start: 20031006, end: 20031006
  2. OMNISCAN [Concomitant]
     Indication: VENOGRAM
     Dates: start: 20030226, end: 20030226
  3. GADOLINIUM IN UNSPECIFIED DRUG [Suspect]
     Indication: ANGIOGRAM
     Dosage: UNK
     Dates: start: 20010209, end: 20010209
  4. GADOLINIUM IN UNSPECIFIED DRUG [Suspect]
     Indication: FISTULOGRAM
     Dosage: UNK
     Dates: start: 20040123, end: 20040123
  5. GADOLINIUM IN UNSPECIFIED DRUG [Suspect]
     Indication: ARTHROGRAM
     Dosage: UNK
     Dates: start: 20050628, end: 20050628
  6. CONTRAST MEDIA [Concomitant]
     Indication: NUCLEAR MAGNETIC RESONANCE IMAGING
     Route: 042
     Dates: start: 20010209, end: 20010209
  7. CONTRAST MEDIA [Concomitant]
     Indication: FISTULOGRAM
     Dates: start: 20040123, end: 20040123
  8. CONTRAST MEDIA [Concomitant]
     Indication: ANGIOGRAM
     Dates: start: 20050628, end: 20050628
  9. GLIPIZIDE [Concomitant]
  10. INSULIN [Concomitant]
  11. NEPHROVITE [VIT C,VIT H,B5,B12,B9,B3,B6,B2,B1 HCL] [Concomitant]
  12. CALCIUM ACETATE [Concomitant]
  13. METOPROLOL [Concomitant]
  14. SYNTHROID [Concomitant]
  15. SEVELAMER [Concomitant]
  16. FERROUS SULFATE [Concomitant]
  17. TERAZOSIN [Concomitant]
  18. FOLIC ACID [Concomitant]
  19. ASPIRIN [Concomitant]
  20. IRON [Concomitant]
  21. EPO [Concomitant]
  22. IRBESARTAN [Concomitant]
  23. CLONIDINE [Concomitant]
  24. HYDRALAZINE [Concomitant]
  25. FELODIPINE [Concomitant]
  26. LASIX [Concomitant]
  27. VISIPAQUE [IODINE,IODIXANOL] [Concomitant]
     Indication: VENOGRAM
     Dates: start: 20030226, end: 20030226
  28. VISIPAQUE [IODINE,IODIXANOL] [Concomitant]
     Indication: FISTULOGRAM
     Dates: start: 20031006, end: 20031006
  29. DOVONEX [Concomitant]
     Route: 061
  30. GLEEVEC [Concomitant]
     Dosage: 100 MG, QD
     Dates: start: 200808, end: 200809
  31. GLEEVEC [Concomitant]
     Dosage: 400 MG, QD
     Dates: start: 200810

REACTIONS (44)
  - Nephrogenic systemic fibrosis [Fatal]
  - Erythema [Fatal]
  - Blister [Fatal]
  - Burning sensation [Fatal]
  - Skin induration [Fatal]
  - Oedema peripheral [Fatal]
  - Skin hypertrophy [Fatal]
  - Skin tightness [Fatal]
  - Skin disorder [Fatal]
  - Skin exfoliation [Fatal]
  - Muscle contracture [Fatal]
  - Joint stiffness [Fatal]
  - Rash papular [Fatal]
  - Skin discolouration [Fatal]
  - Renal failure [Unknown]
  - Blood creatinine increased [Unknown]
  - Contrast media reaction [Unknown]
  - Pain [None]
  - General physical health deterioration [None]
  - Emotional distress [None]
  - Injury [None]
  - Joint contracture [Fatal]
  - Deformity [None]
  - Fibrosis [Fatal]
  - Anxiety [None]
  - Pain [None]
  - Quality of life decreased [None]
  - Depression [None]
  - Anhedonia [None]
  - Abasia [Fatal]
  - Dysstasia [Fatal]
  - Balance disorder [Fatal]
  - Decreased activity [None]
  - Diabetes mellitus inadequate control [None]
  - Skin mass [Fatal]
  - Hyperkeratosis [Fatal]
  - Skin plaque [Fatal]
  - Skin fibrosis [Fatal]
  - Joint range of motion decreased [Fatal]
  - Musculoskeletal stiffness [Fatal]
  - Skin atrophy [Fatal]
  - Soft tissue atrophy [Fatal]
  - Hypoaesthesia [Fatal]
  - Asthenia [Fatal]
